FAERS Safety Report 8012807 (Version 11)
Quarter: 2012Q4

REPORT INFORMATION
  Report Type: 
  Country: US (occurrence: US)
  Receive Date: 20110628
  Receipt Date: 20121220
  Transmission Date: 20130627
  Serious: Yes (Hospitalization, Congenital Anomaly, Other)
  Sender: FDA-Public Use
  Company Number: US-PFIZER INC-2011138470

PATIENT
  Sex: Male
  Weight: 2.4 kg

DRUGS (10)
  1. ZOLOFT [Suspect]
     Indication: ANXIETY
     Dosage: UNK
     Route: 064
     Dates: start: 20070807
  2. ZOLOFT [Suspect]
     Indication: DEPRESSION
     Dosage: UNK
     Route: 064
     Dates: start: 20070912, end: 20071215
  3. ZOLOFT [Suspect]
     Dosage: UNK
     Route: 064
     Dates: start: 20080117
  4. ZOLOFT [Suspect]
     Dosage: 50 mg, 1x/day
     Route: 064
     Dates: start: 20071025
  5. VISTARIL [Suspect]
     Indication: ANXIETY
     Dosage: UNK
     Route: 064
     Dates: start: 200702
  6. VISTARIL [Suspect]
     Indication: DEPRESSION
     Dosage: UNK
     Route: 064
     Dates: start: 20070807
  7. PAXIL [Suspect]
     Indication: ANXIETY
     Dosage: UNK
     Route: 064
     Dates: start: 200702, end: 200710
  8. PAXIL [Suspect]
     Indication: DEPRESSION
     Dosage: UNK
     Route: 064
     Dates: start: 20070807
  9. PAXIL [Suspect]
     Dosage: 37.5 mg, 1x/day
     Route: 064
     Dates: start: 20070726
  10. PRENATAL VITAMINS [Concomitant]
     Dosage: UNK
     Route: 064
     Dates: start: 20070807, end: 2007

REACTIONS (30)
  - Foetal exposure during pregnancy [Unknown]
  - Pulmonary hypoplasia [Unknown]
  - Renal dysplasia [Unknown]
  - Asthma [Recovered/Resolved]
  - Dextrocardia [Unknown]
  - Heart valve stenosis [Unknown]
  - Acute respiratory failure [Unknown]
  - Hypoxia [Unknown]
  - Pulmonary aplasia [Unknown]
  - VACTERL syndrome [Unknown]
  - Renal aplasia [Unknown]
  - Spine malformation [Unknown]
  - Pulmonary valve stenosis congenital [Unknown]
  - Congenital hand malformation [Unknown]
  - Pericardial effusion [Unknown]
  - Low set ears [Unknown]
  - Failure to thrive [Unknown]
  - Pelvic kidney [Unknown]
  - Rib deformity [Unknown]
  - Hemivertebra [Unknown]
  - Pulmonary aplasia [Unknown]
  - Bone disorder [Unknown]
  - Primary ciliary dyskinesia [Unknown]
  - Congenital scoliosis [Unknown]
  - Pulmonary arterial hypertension [Unknown]
  - Gross motor delay [Unknown]
  - Ventricular dysfunction [Unknown]
  - Anal stenosis [Unknown]
  - Rectal prolapse [Unknown]
  - Cardiomegaly [Unknown]
